FAERS Safety Report 16252893 (Version 1)
Quarter: 2019Q2

REPORT INFORMATION
  Report Type: Spontaneous
  Country: BR (occurrence: BR)
  Receive Date: 20190429
  Receipt Date: 20190429
  Transmission Date: 20190711
  Serious: Yes (Other)
  Sender: FDA-Public Use
  Company Number: BR-ELI_LILLY_AND_COMPANY-BR201602003539

PATIENT
  Sex: Female
  Weight: 70 kg

DRUGS (9)
  1. HUMALOG [Suspect]
     Active Substance: INSULIN LISPRO
     Indication: TYPE 1 DIABETES MELLITUS
     Dosage: 6 IU, EACH MORNING
     Route: 058
     Dates: start: 1998
  2. HUMALOG [Suspect]
     Active Substance: INSULIN LISPRO
     Dosage: 6 IU, EACH MORNING
     Route: 058
  3. LEVOTIROXINA [LEVOTHYROXINE] [Concomitant]
     Indication: HYPOTHYROIDISM
     Dosage: UNK, UNKNOWN
     Route: 065
  4. HUMALOG [Suspect]
     Active Substance: INSULIN LISPRO
     Dosage: 6 IU, BEFORE DINNER
     Route: 058
     Dates: start: 1998
  5. HUMALOG [Suspect]
     Active Substance: INSULIN LISPRO
     Dosage: 6 IU, BEFORE DINNER
     Route: 058
  6. HUMAN INSULIN [Suspect]
     Active Substance: INSULIN HUMAN
     Indication: TYPE 1 DIABETES MELLITUS
     Dosage: UNK, UNKNOWN
     Route: 065
  7. HUMALOG [Suspect]
     Active Substance: INSULIN LISPRO
     Dosage: 6 IU, AT LUNCH
     Route: 058
     Dates: start: 1998
  8. HUMALOG [Suspect]
     Active Substance: INSULIN LISPRO
     Dosage: 6 IU, AT LUNCH
     Route: 058
  9. LANTUS [Concomitant]
     Active Substance: INSULIN GLARGINE
     Indication: TYPE 1 DIABETES MELLITUS
     Dosage: UNK, UNKNOWN
     Route: 065

REACTIONS (8)
  - Hyperglycaemia [Unknown]
  - Blood glucose increased [Unknown]
  - Hypoacusis [Unknown]
  - Product storage error [Unknown]
  - Hypermetropia [Not Recovered/Not Resolved]
  - Product tampering [Unknown]
  - Astigmatism [Not Recovered/Not Resolved]
  - Incorrect dose administered [Unknown]
